FAERS Safety Report 25312772 (Version 1)
Quarter: 2025Q2

REPORT INFORMATION
  Report Type: Spontaneous
  Country: NO (occurrence: NO)
  Receive Date: 20250514
  Receipt Date: 20250514
  Transmission Date: 20250717
  Serious: Yes (Other)
  Sender: AUROBINDO
  Company Number: NO-MYLANLABS-2025M1011640

PATIENT
  Sex: Female

DRUGS (4)
  1. NAPROXEN [Suspect]
     Active Substance: NAPROXEN
     Indication: Fibromyalgia
     Dosage: 1 GRAM, ONCE A DAY
     Route: 065
     Dates: start: 20211101
  2. ACETAMINOPHEN [Suspect]
     Active Substance: ACETAMINOPHEN
     Indication: Fibromyalgia
     Route: 065
  3. PARAFLEX [Suspect]
     Active Substance: CHLORZOXAZONE
     Indication: Fibromyalgia
     Route: 065
  4. ACETAMINOPHEN [Concomitant]
     Active Substance: ACETAMINOPHEN
     Indication: Product used for unknown indication
     Dosage: 3 GRAM, ONCE A DAY
     Route: 065

REACTIONS (5)
  - Renal injury [Unknown]
  - Liver injury [Unknown]
  - Myocardial injury [Unknown]
  - Musculoskeletal injury [Unknown]
  - Ulcer [Unknown]

NARRATIVE: CASE EVENT DATE: 20211102
